FAERS Safety Report 4952449-6 (Version None)
Quarter: 2006Q1

REPORT INFORMATION
  Report Type: 
  Country: None (occurrence: None)
  Receive Date: 20060323
  Receipt Date: 20050829
  Transmission Date: 20060701
  Serious: Yes (Other)
  Sender: FDA-Public Use
  Company Number: US-MERCK-0508USA04816

PATIENT
  Age: 68 Year
  Sex: Male
  Weight: 86 kg

DRUGS (8)
  1. VIOXX [Suspect]
     Indication: ARTHRITIS
     Route: 048
     Dates: start: 20000101, end: 20040101
  2. PLAVIX [Concomitant]
     Route: 065
  3. LASIX [Concomitant]
     Route: 065
  4. ECOTRIN [Concomitant]
     Route: 065
  5. IMURAN [Concomitant]
     Route: 065
  6. TIAZAC [Concomitant]
     Route: 065
  7. GLUCOTROL [Concomitant]
     Route: 065
  8. POTASSIUM (UNSPECIFIED) [Concomitant]
     Route: 065

REACTIONS (3)
  - ARTERIAL OCCLUSIVE DISEASE [None]
  - INJURY [None]
  - NEPHROLITHIASIS [None]
